FAERS Safety Report 25679451 (Version 1)
Quarter: 2025Q3

REPORT INFORMATION
  Report Type: Spontaneous
  Country: CN (occurrence: CN)
  Receive Date: 20250814
  Receipt Date: 20250814
  Transmission Date: 20251020
  Serious: Yes (Other)
  Sender: BEIGENE
  Company Number: CN-BEIGENE-BGN-2025-013142

PATIENT
  Age: 63 Year
  Weight: 60 kg

DRUGS (12)
  1. TISLELIZUMAB [Suspect]
     Active Substance: TISLELIZUMAB
     Indication: Lung neoplasm malignant
  2. TISLELIZUMAB [Suspect]
     Active Substance: TISLELIZUMAB
     Route: 041
  3. TISLELIZUMAB [Suspect]
     Active Substance: TISLELIZUMAB
     Route: 041
  4. TISLELIZUMAB [Suspect]
     Active Substance: TISLELIZUMAB
  5. CARBOPLATIN [Suspect]
     Active Substance: CARBOPLATIN
     Indication: Lung neoplasm malignant
  6. CARBOPLATIN [Suspect]
     Active Substance: CARBOPLATIN
     Route: 041
  7. CARBOPLATIN [Suspect]
     Active Substance: CARBOPLATIN
     Route: 041
  8. CARBOPLATIN [Suspect]
     Active Substance: CARBOPLATIN
  9. PACLITAXEL [Suspect]
     Active Substance: PACLITAXEL
     Indication: Lung neoplasm malignant
  10. PACLITAXEL [Suspect]
     Active Substance: PACLITAXEL
     Route: 041
  11. PACLITAXEL [Suspect]
     Active Substance: PACLITAXEL
     Route: 041
  12. PACLITAXEL [Suspect]
     Active Substance: PACLITAXEL

REACTIONS (1)
  - Hepatic function abnormal [Recovering/Resolving]
